FAERS Safety Report 4762588-0 (Version None)
Quarter: 2005Q3

REPORT INFORMATION
  Report Type: 
  Country: None (occurrence: None)
  Receive Date: 20050907
  Receipt Date: 20050715
  Transmission Date: 20060218
  Serious: Yes (Hospitalization)
  Sender: FDA-Public Use
  Company Number: US-GLAXOSMITHKLINE-A0566466A

PATIENT
  Age: 43 Year
  Sex: Female

DRUGS (4)
  1. ZANTAC [Suspect]
     Indication: DRUG USE FOR UNKNOWN INDICATION
     Dosage: 150MG FOUR TIMES PER DAY
     Route: 048
     Dates: start: 20050101
  2. CLARITIN [Concomitant]
  3. BECONASE [Concomitant]
  4. LIPITOR [Concomitant]

REACTIONS (3)
  - DRY MOUTH [None]
  - DRY THROAT [None]
  - IRRITABLE BOWEL SYNDROME [None]
